FAERS Safety Report 11695570 (Version 1)
Quarter: 2015Q4

REPORT INFORMATION
  Report Type: Spontaneous
  Country: US (occurrence: US)
  Receive Date: 20151104
  Receipt Date: 20151104
  Transmission Date: 20160304
  Serious: No
  Sender: FDA-Public Use
  Company Number: US-ASTRAZENECA-2015SF03355

PATIENT
  Sex: Male
  Weight: 99.8 kg

DRUGS (9)
  1. GLIMEPIRIDE. [Concomitant]
     Active Substance: GLIMEPIRIDE
  2. BYDUREON [Suspect]
     Active Substance: EXENATIDE
     Route: 058
  3. HUMALOG [Concomitant]
     Active Substance: INSULIN LISPRO
  4. SIMVASTATIN. [Concomitant]
     Active Substance: SIMVASTATIN
  5. TIMOLOL. [Concomitant]
     Active Substance: TIMOLOL
  6. CIALIS [Concomitant]
     Active Substance: TADALAFIL
     Route: 048
  7. VITAMIN D [Concomitant]
     Active Substance: CHOLECALCIFEROL
  8. LEVEMIR [Concomitant]
     Active Substance: INSULIN DETEMIR
  9. VALSARTAN. [Concomitant]
     Active Substance: VALSARTAN

REACTIONS (2)
  - Muscular weakness [Unknown]
  - Muscle spasms [Unknown]
